FAERS Safety Report 24221381 (Version 1)
Quarter: 2024Q3

REPORT INFORMATION
  Report Type: Spontaneous
  Country: CN (occurrence: CN)
  Receive Date: 20240819
  Receipt Date: 20240819
  Transmission Date: 20241017
  Serious: Yes (Other)
  Sender: SANDOZ
  Company Number: CN-002147023-NVSC2024CN164064

PATIENT
  Age: 7 Year
  Sex: Male
  Weight: 15 kg

DRUGS (1)
  1. TOBRAMYCIN [Suspect]
     Active Substance: TOBRAMYCIN\TOBRAMYCIN SULFATE
     Indication: Conjunctivitis bacterial
     Dosage: 4 DRP, TID
     Route: 065
     Dates: start: 20240729, end: 20240730

REACTIONS (7)
  - Hypoacusis [Recovering/Resolving]
  - Gait disturbance [Unknown]
  - Paraesthesia [Unknown]
  - Dizziness [Recovering/Resolving]
  - Headache [Recovering/Resolving]
  - Erythema of eyelid [Recovering/Resolving]
  - Swelling of eyelid [Recovering/Resolving]

NARRATIVE: CASE EVENT DATE: 20240730
